FAERS Safety Report 20662665 (Version 1)
Quarter: 2022Q2

REPORT INFORMATION
  Report Type: Spontaneous
  Country: GB (occurrence: GB)
  Receive Date: 20220401
  Receipt Date: 20220401
  Transmission Date: 20220721
  Serious: Yes (Other)
  Sender: FDA-Public Use
  Company Number: GB-SANOFI-01034888

PATIENT
  Age: 74 Year
  Sex: Female

DRUGS (3)
  1. LANTUS [Suspect]
     Active Substance: INSULIN GLARGINE
     Indication: Type 1 diabetes mellitus
     Dosage: UNK UNK, BID
  2. INSULIN ASPART [Suspect]
     Active Substance: INSULIN ASPART
  3. COVID-19 VACCINE NOS [Suspect]
     Active Substance: COVID-19 VACCINE NOS

REACTIONS (4)
  - Rheumatoid arthritis [Unknown]
  - Asthenia [Unknown]
  - Unevaluable event [Unknown]
  - Inappropriate schedule of product administration [Unknown]
